FAERS Safety Report 6428486-1 (Version None)
Quarter: 2009Q4

REPORT INFORMATION
  Report Type: 
  Country: None (occurrence: None)
  Receive Date: 20091105
  Receipt Date: 20091026
  Transmission Date: 20100525
  Serious: Yes (Other)
  Sender: FDA-Public Use
  Company Number: AU-PFIZER INC-2009289252

PATIENT
  Age: 74 Year
  Sex: Male

DRUGS (3)
  1. AMLODIPINE BESILATE [Suspect]
     Dosage: 10 MG, DAILY
  2. IMATINIB [Suspect]
     Indication: CHRONIC MYELOID LEUKAEMIA
     Dosage: 400 MG, 2X/DAY
  3. ATORVASTATIN [Concomitant]
     Dosage: 40 MG DAILY

REACTIONS (7)
  - DRUG INTERACTION [None]
  - MEDICATION ERROR [None]
  - NAUSEA [None]
  - NEUROPATHY PERIPHERAL [None]
  - OEDEMA PERIPHERAL [None]
  - PALPITATIONS [None]
  - PERIORBITAL OEDEMA [None]
